FAERS Safety Report 7582343-6 (Version None)
Quarter: 2011Q2

REPORT INFORMATION
  Report Type: 
  Country: None (occurrence: None)
  Receive Date: 20110630
  Receipt Date: 20110616
  Transmission Date: 20111010
  Serious: Yes (Hospitalization)
  Sender: FDA-Public Use
  Company Number: CA-JNJFOC-20100808461

PATIENT
  Sex: Male
  Weight: 78.6 kg

DRUGS (6)
  1. METFORMIN HCL [Concomitant]
  2. EFFEXOR [Concomitant]
  3. CALCIUM WITH VITAMIN D [Concomitant]
  4. TYLENOL W/ CODEINE NO. 3 [Concomitant]
  5. REMICADE [Suspect]
     Dosage: 15TH DOSE
     Route: 042
     Dates: start: 20100712
  6. REMICADE [Suspect]
     Indication: CROHN'S DISEASE
     Route: 042
     Dates: start: 20080821

REACTIONS (3)
  - HEPATIC STEATOSIS [None]
  - HEPATIC CIRRHOSIS [None]
  - NEPHROLITHIASIS [None]
